FAERS Safety Report 7450517-0 (Version None)
Quarter: 2011Q2

REPORT INFORMATION
  Report Type: 
  Country: None (occurrence: None)
  Receive Date: 20110502
  Receipt Date: 20110425
  Transmission Date: 20111010
  Serious: Yes (Hospitalization)
  Sender: FDA-Public Use
  Company Number: PHHO2010US10677

PATIENT
  Sex: Female

DRUGS (18)
  1. PEPCID [Concomitant]
  2. LISINOPRIL [Concomitant]
  3. METOPROLOL SUCCINATE [Concomitant]
  4. COLACE [Concomitant]
  5. PAMELOR [Concomitant]
  6. OXYCODONE [Concomitant]
  7. CELLCEPT [Suspect]
     Dosage: 3 G, DAILY
     Route: 048
     Dates: start: 20070120
  8. HYDROCODONE BITARTRATE [Concomitant]
  9. PRAVASTATIN [Concomitant]
  10. PREDNISONE [Suspect]
     Dosage: UNK
  11. OXYCONTIN [Concomitant]
  12. CYCLOSPORINE [Suspect]
     Dosage: 275 MG, DAILY
     Route: 048
  13. M.V.I. [Concomitant]
  14. XANAX [Concomitant]
  15. NEURONTIN [Concomitant]
  16. NORTRIPTYLINE [Concomitant]
  17. CYCLOSPORINE [Suspect]
     Indication: RENAL TRANSPLANT
     Dosage: 300 MG, DAILY
     Route: 048
     Dates: start: 20070120
  18. NITROGLYCERIN [Concomitant]

REACTIONS (15)
  - MITRAL VALVE INCOMPETENCE [None]
  - CHEST DISCOMFORT [None]
  - BETA HAEMOLYTIC STREPTOCOCCAL INFECTION [None]
  - SINUS TACHYCARDIA [None]
  - RIGHT VENTRICULAR SYSTOLIC PRESSURE INCREASED [None]
  - PERINEAL PAIN [None]
  - ELECTROCARDIOGRAM T WAVE ABNORMAL [None]
  - CHEST PAIN [None]
  - NAUSEA [None]
  - LEFT VENTRICULAR HYPERTROPHY [None]
  - DYSPNOEA [None]
  - HAEMATURIA [None]
  - URINARY TRACT INFECTION BACTERIAL [None]
  - FATIGUE [None]
  - ABDOMINAL PAIN [None]
